FAERS Safety Report 25595471 (Version 1)
Quarter: 2025Q3

REPORT INFORMATION
  Report Type: Spontaneous
  Country: EU (occurrence: EU)
  Receive Date: 20250723
  Receipt Date: 20250723
  Transmission Date: 20251021
  Serious: Yes (Life-Threatening, Hospitalization, Other)
  Sender: HIKMA
  Company Number: None

PATIENT
  Age: 49 Year
  Sex: Male
  Weight: 54 kg

DRUGS (2)
  1. CISPLATIN [Suspect]
     Active Substance: CISPLATIN
     Indication: Pineal parenchymal neoplasm malignant
     Route: 042
     Dates: start: 20250324, end: 20250503
  2. ETOPOSIDE [Suspect]
     Active Substance: ETOPOSIDE
     Indication: Pineal parenchymal neoplasm malignant
     Route: 042
     Dates: start: 20250324, end: 20250530

REACTIONS (3)
  - Pneumonia [Not Recovered/Not Resolved]
  - Pancytopenia [Recovered/Resolved]
  - Agranulocytosis [Recovered/Resolved]

NARRATIVE: CASE EVENT DATE: 20250604
